FAERS Safety Report 4381660-0 (Version None)
Quarter: 2004Q2

REPORT INFORMATION
  Report Type: 
  Country: None (occurrence: None)
  Receive Date: 20040607
  Receipt Date: 20040526
  Transmission Date: 20050107
  Serious: Yes (Other)
  Sender: FDA-Public Use
  Company Number: B0333846A

PATIENT
  Sex: 0

DRUGS (5)
  1. ALKERAN [Suspect]
     Indication: PRIMARY AMYLOIDOSIS
     Dosage: .22 MG/KG/UNK/UNKNOWN
     Route: 065
  2. DEXAMETHASONE [Suspect]
     Indication: PRIMARY AMYLOIDOSIS
     Dosage: 40 MG/UNKNOWN; ORAL
     Route: 048
  3. OMEPRAZOLE [Concomitant]
  4. CIPROFLOXACIN [Concomitant]
  5. ITRACONAZOLE [Concomitant]

REACTIONS (1)
  - MYELODYSPLASTIC SYNDROME [None]
